FAERS Safety Report 7510133-9 (Version None)
Quarter: 2011Q2

REPORT INFORMATION
  Report Type: 
  Country: None (occurrence: None)
  Receive Date: 20110527
  Receipt Date: 20110524
  Transmission Date: 20111010
  Serious: Yes (Other)
  Sender: FDA-Public Use
  Company Number: BR-ABBOTT-11P-020-0728287-00

PATIENT
  Sex: Female
  Weight: 59 kg

DRUGS (4)
  1. HUMIRA [Suspect]
     Indication: CROHN'S DISEASE
     Route: 058
     Dates: end: 20110301
  2. HUMIRA [Suspect]
     Dosage: (80 MG)
     Route: 058
  3. HUMIRA [Suspect]
     Dosage: INDUCTION DOSE
     Route: 058
  4. HUMIRA [Suspect]
     Dosage: INDUCTION DOSE
     Route: 058

REACTIONS (13)
  - INTESTINAL MUCOSAL ATROPHY [None]
  - DRUG INEFFECTIVE [None]
  - EYE PAIN [None]
  - NAUSEA [None]
  - FATIGUE [None]
  - HEADACHE [None]
  - CHEST PAIN [None]
  - GASTROINTESTINAL NECROSIS [None]
  - INTESTINAL ULCER [None]
  - CROHN'S DISEASE [None]
  - PAIN [None]
  - DYSPNOEA [None]
  - INFECTION [None]
